FAERS Safety Report 5258436-5 (Version None)
Quarter: 2007Q1

REPORT INFORMATION
  Report Type: 
  Country: None (occurrence: None)
  Receive Date: 20061217
  Receipt Date: 20060719
  Transmission Date: 20070707
  Serious: Yes (Hospitalization)
  Sender: FDA-Public Use
  Company Number: US-JNJFOC-20060704054

PATIENT
  Age: 63 Year
  Sex: Male
  Weight: 98.4306 kg

DRUGS (6)
  1. LEVAQUIN [Suspect]
     Indication: PNEUMONIA
     Dosage: 500 MG, 1 IN 1 DAY
     Dates: start: 20051001, end: 20051001
  2. THEOPHYLLINE [Concomitant]
  3. PLAVIX [Concomitant]
  4. LIPITOR [Concomitant]
  5. ASPIRIN [Concomitant]
  6. CLARITIN [Concomitant]

REACTIONS (1)
  - CONVULSION [None]
